FAERS Safety Report 8137617-7 (Version None)
Quarter: 2012Q1

REPORT INFORMATION
  Report Type: 
  Country: None (occurrence: None)
  Receive Date: 20120215
  Receipt Date: 20120210
  Transmission Date: 20120608
  Serious: Yes (Hospitalization, Other)
  Sender: FDA-Public Use
  Company Number: US-PFIZER INC-2011304352

PATIENT
  Sex: Male

DRUGS (15)
  1. FUZEON [Concomitant]
     Indication: HIV INFECTION
     Dosage: UNK
     Dates: start: 20070101, end: 20091001
  2. NEURONTIN [Concomitant]
     Indication: NEUROPATHY PERIPHERAL
     Dosage: UNK
     Dates: start: 20080501, end: 20100601
  3. CHANTIX [Suspect]
     Dosage: 1 MG
     Dates: start: 20070401, end: 20071121
  4. CHANTIX [Suspect]
     Dosage: STARTER PACK
     Dates: start: 20081203, end: 20081209
  5. MORPHINE SULFATE [Concomitant]
     Indication: PAIN
     Dosage: UNK
     Dates: start: 20080407
  6. CHANTIX [Suspect]
     Dosage: 1 MG
     Dates: start: 20071201, end: 20081015
  7. DIAZEPAM [Concomitant]
     Indication: INSOMNIA
     Dosage: UNK
     Dates: start: 20080501
  8. KALETRA [Concomitant]
     Indication: HIV INFECTION
     Dosage: UNK
     Dates: start: 19960101, end: 20110101
  9. EPZICOM [Concomitant]
     Indication: HIV INFECTION
     Dosage: UNK
     Dates: start: 20080501
  10. LONOX [Concomitant]
     Indication: DYSPEPSIA
     Dosage: UNK
     Dates: start: 20081016, end: 20090201
  11. CHANTIX [Suspect]
     Dosage: 0.5 MG
     Dates: start: 20081001, end: 20081203
  12. NEXIUM [Concomitant]
     Indication: DYSPEPSIA
     Dosage: UNK
     Dates: start: 19980101
  13. AVANDIA [Concomitant]
     Indication: PANCREATIC DISORDER
     Dosage: UNK
     Dates: start: 20080601, end: 20090101
  14. CHANTIX [Suspect]
     Indication: SMOKING CESSATION THERAPY
     Dosage: STARTER PACK
     Dates: start: 20070308, end: 20070411
  15. CHANTIX [Suspect]
     Dosage: STARTER PACK
     Dates: start: 20071101, end: 20071217

REACTIONS (3)
  - INTENTIONAL OVERDOSE [None]
  - SUICIDE ATTEMPT [None]
  - DEPRESSION [None]
